FAERS Safety Report 15135808 (Version 1)
Quarter: 2018Q3

REPORT INFORMATION
  Report Type: Spontaneous
  Country: US (occurrence: US)
  Receive Date: 20180616
  Receipt Date: 20180616
  Transmission Date: 20181010
  Serious: Yes (Hospitalization)
  Sender: FDA-Public Use
  Company Number: None

PATIENT
  Age: 63 Year
  Sex: Male
  Weight: 93.03 kg

DRUGS (2)
  1. GEMCITABINE HYDROCHLORIDE (613327) [Suspect]
     Active Substance: GEMCITABINE HYDROCHLORIDE
     Dates: end: 20180606
  2. PACLITAXEL PROTEIN?BOUND PARTICLES (ALBUMIN?BOUND) [Suspect]
     Active Substance: PACLITAXEL
     Dates: end: 20180606

REACTIONS (9)
  - Acute kidney injury [None]
  - Chills [None]
  - Asthenia [None]
  - Sepsis [None]
  - Pneumonia [None]
  - Pyrexia [None]
  - Cough [None]
  - Septic shock [None]
  - Hypotension [None]

NARRATIVE: CASE EVENT DATE: 20180608
